FAERS Safety Report 8465245-2 (Version None)
Quarter: 2012Q2

REPORT INFORMATION
  Report Type: 
  Country: None (occurrence: None)
  Receive Date: 20120626
  Receipt Date: 20120621
  Transmission Date: 20120825
  Serious: Yes (Hospitalization)
  Sender: FDA-Public Use
  Company Number: PHHY2012DE053642

PATIENT
  Age: 37 Year
  Sex: Female

DRUGS (4)
  1. ESTRADERM [Suspect]
     Dosage: 37.5 UG/24 HOURS , 1 PATCH EVERY 3-4 DAYS
     Route: 062
     Dates: start: 20120501
  2. ANALGESICS [Concomitant]
     Indication: HEADACHE
     Dosage: UNK UKN, UNK
  3. ESTRADERM [Suspect]
     Dosage: 25 UG/24 HOURS , 2 PATCHES EVERY 3-4 DAYS
     Route: 062
     Dates: start: 20120401, end: 20120501
  4. ESTRADERM [Suspect]
     Indication: HORMONE REPLACEMENT THERAPY
     Dosage: 25 UG/24 HOURS , EVERY 3-4 DAYS
     Route: 062
     Dates: start: 20120201, end: 20120401

REACTIONS (3)
  - PAIN IN EXTREMITY [None]
  - FATIGUE [None]
  - IMPAIRED HEALING [None]
